FAERS Safety Report 6337456-3 (Version None)
Quarter: 2009Q3

REPORT INFORMATION
  Report Type: 
  Country: None (occurrence: None)
  Receive Date: 20090901
  Receipt Date: 20090901
  Transmission Date: 20100115
  Serious: No
  Sender: FDA-Public Use
  Company Number: None

PATIENT
  Sex: Male
  Weight: 72.5755 kg

DRUGS (2)
  1. VANCOMYCIN [Suspect]
     Indication: OSTEOMYELITIS
     Dosage: 1000 Q12H IV
     Route: 042
     Dates: start: 20090820, end: 20090831
  2. CEFTRIAXON [Suspect]
     Indication: OSTEOMYELITIS
     Dosage: 2000 Q24H IV
     Route: 042
     Dates: start: 20090820, end: 20090831

REACTIONS (1)
  - RASH [None]
